FAERS Safety Report 19840607 (Version 3)
Quarter: 2021Q4

REPORT INFORMATION
  Report Type: Spontaneous
  Country: US (occurrence: US)
  Receive Date: 20210916
  Receipt Date: 20211012
  Transmission Date: 20220303
  Serious: No
  Sender: FDA-Public Use
  Company Number: US-UNITED THERAPEUTICS-UNT-2021-017359

PATIENT
  Sex: Male

DRUGS (2)
  1. REMODULIN [Suspect]
     Active Substance: TREPROSTINIL
     Indication: Pulmonary arterial hypertension
     Dosage: UNK, CONTINUING
     Route: 058
     Dates: start: 20210323
  2. REMODULIN [Suspect]
     Active Substance: TREPROSTINIL
     Dosage: 0.0395 ?G/KG, CONTINUING
     Route: 058
     Dates: start: 2021

REACTIONS (4)
  - Pruritus [Unknown]
  - Dry skin [Unknown]
  - Infusion site pain [Unknown]
  - Infusion site irritation [Unknown]

NARRATIVE: CASE EVENT DATE: 20210101
